FAERS Safety Report 7901765-4 (Version None)
Quarter: 2011Q4

REPORT INFORMATION
  Report Type: 
  Country: None (occurrence: None)
  Receive Date: 20111108
  Receipt Date: 20111025
  Transmission Date: 20120403
  Serious: Yes (Hospitalization)
  Sender: FDA-Public Use
  Company Number: PHHY2011IL097311

PATIENT
  Age: 76 Year
  Sex: Male

DRUGS (2)
  1. SANDOSTATIN LAR [Suspect]
     Indication: CARCINOID SYNDROME
     Dosage: 60 MG, EVERY 28 DAYS
     Dates: start: 20080421
  2. SANDOSTATIN LAR [Suspect]
     Dosage: 60 MG, EVERY 28 DAYS
     Dates: start: 20111016

REACTIONS (4)
  - VOMITING [None]
  - CHILLS [None]
  - BACTERAEMIA [None]
  - DIARRHOEA [None]
